FAERS Safety Report 9925408 (Version 2)
Quarter: 2014Q1

REPORT INFORMATION
  Report Type: Report from Study
  Country: US (occurrence: US)
  Receive Date: 20140226
  Receipt Date: 20140303
  Transmission Date: 20141002
  Serious: Yes (Hospitalization)
  Sender: FDA-Public Use
  Company Number: US-JNJFOC-20140214616

PATIENT
  Age: 13 Year
  Sex: Male
  Weight: 45.36 kg

DRUGS (8)
  1. REMICADE [Suspect]
     Indication: INFLAMMATORY BOWEL DISEASE
     Route: 042
     Dates: start: 20090319, end: 20090617
  2. ALBUTEROL [Concomitant]
     Route: 055
  3. 5-ASA [Concomitant]
     Route: 054
  4. ASMANEX [Concomitant]
     Route: 055
  5. FLONASE [Concomitant]
     Route: 065
  6. AFRIN SINUS [Concomitant]
     Route: 065
  7. GAMMAGARD [Concomitant]
     Route: 042
  8. SINGULAIR [Concomitant]
     Route: 065

REACTIONS (1)
  - Influenza [Recovered/Resolved]
